FAERS Safety Report 25889801 (Version 1)
Quarter: 2025Q4

REPORT INFORMATION
  Report Type: Spontaneous
  Country: EU (occurrence: EU)
  Receive Date: 20251007
  Receipt Date: 20251007
  Transmission Date: 20260118
  Serious: Yes (Hospitalization, Other)
  Sender: ROCHE
  Company Number: EU-ROCHE-10000399617

PATIENT
  Age: 64 Year
  Sex: Male

DRUGS (3)
  1. TECENTRIQ [Suspect]
     Active Substance: ATEZOLIZUMAB
     Indication: Small cell carcinoma
     Route: 065
     Dates: start: 20210701
  2. CARBOPLATIN [Concomitant]
     Active Substance: CARBOPLATIN
  3. ETOPOSIDE [Concomitant]
     Active Substance: ETOPOSIDE

REACTIONS (7)
  - Hydrocephalus [Unknown]
  - Pruritus [Unknown]
  - Rash [Unknown]
  - Acute myocardial infarction [Unknown]
  - Coronary artery thrombosis [Unknown]
  - Ventricular dysfunction [Unknown]
  - Ejection fraction decreased [Unknown]
